FAERS Safety Report 4979882-0 (Version None)
Quarter: 2006Q2

REPORT INFORMATION
  Report Type: 
  Country: None (occurrence: None)
  Receive Date: 20060421
  Receipt Date: 20050509
  Transmission Date: 20061013
  Serious: Yes (Hospitalization, Other)
  Sender: FDA-Public Use
  Company Number: US-MERCK-0505USA01109

PATIENT
  Age: 69 Year
  Sex: Male
  Weight: 96 kg

DRUGS (10)
  1. VIOXX [Suspect]
     Indication: SPINAL OSTEOARTHRITIS
     Route: 048
     Dates: start: 20010520, end: 20040827
  2. ZESTORETIC [Concomitant]
     Route: 048
  3. OMEPRAZOLE [Concomitant]
     Route: 048
  4. GEMFIBROZIL [Concomitant]
     Route: 048
  5. ATENOLOL [Concomitant]
     Route: 048
  6. LIPITOR [Concomitant]
     Route: 048
  7. LASIX [Concomitant]
     Route: 048
  8. POTASSIUM CHLORIDE [Concomitant]
     Route: 048
  9. ECOTRIN [Concomitant]
     Route: 048
  10. CENTRUM [Concomitant]
     Route: 048

REACTIONS (5)
  - ANGINA PECTORIS [None]
  - ANGIOPATHY [None]
  - CARDIAC FAILURE CONGESTIVE [None]
  - NEPHROSCLEROSIS [None]
  - RENAL FAILURE ACUTE [None]
